FAERS Safety Report 6759363-4 (Version None)
Quarter: 2010Q2

REPORT INFORMATION
  Report Type: 
  Country: None (occurrence: None)
  Receive Date: 20100607
  Receipt Date: 20100526
  Transmission Date: 20101027
  Serious: Yes (Death)
  Sender: FDA-Public Use
  Company Number: BE-ELI_LILLY_AND_COMPANY-BE201005007372

PATIENT

DRUGS (1)
  1. CYMBALTA [Suspect]
     Dosage: UNK, UNKNOWN
     Route: 064
     Dates: start: 20090501

REACTIONS (2)
  - BRAIN NEOPLASM [None]
  - DRUG EXPOSURE DURING PREGNANCY [None]
